FAERS Safety Report 8170245-6 (Version None)
Quarter: 2012Q1

REPORT INFORMATION
  Report Type: 
  Country: None (occurrence: None)
  Receive Date: 20120228
  Receipt Date: 20120221
  Transmission Date: 20120608
  Serious: Yes (Other)
  Sender: FDA-Public Use
  Company Number: JP-VERTEX PHARMACEUTICALS INC.-AE-2012-002093

PATIENT
  Age: 71 Year
  Sex: Female

DRUGS (10)
  1. TELAVIC (TELAPREVIR) [Suspect]
     Route: 048
     Dates: start: 20120131, end: 20120207
  2. PEGINTERFERON ALFA-2B [Concomitant]
     Indication: HEPATITIS C
     Route: 058
     Dates: start: 20120103, end: 20120131
  3. PROMACTA [Concomitant]
  4. MOTILIUM [Concomitant]
  5. TELAVIC (TELAPREVIR) [Suspect]
     Route: 048
     Dates: start: 20120124, end: 20120131
  6. TELAVIC (TELAPREVIR) [Suspect]
     Indication: HEPATITIS C
     Route: 048
     Dates: start: 20120103, end: 20120124
  7. PEGINTERFERON ALFA-2B [Concomitant]
     Route: 058
     Dates: start: 20120131
  8. REBETOL [Concomitant]
     Indication: HEPATITIS C
     Route: 048
     Dates: start: 20120103
  9. REBETOL [Concomitant]
     Route: 048
     Dates: start: 20120131, end: 20120207
  10. OLMESARTAN [Concomitant]

REACTIONS (6)
  - MALAISE [None]
  - BLOOD CREATININE INCREASED [None]
  - HAEMOGLOBIN DECREASED [None]
  - WHITE BLOOD CELL COUNT DECREASED [None]
  - HYPERURICAEMIA [None]
  - PLATELET COUNT DECREASED [None]
